FAERS Safety Report 7688950-4 (Version None)
Quarter: 2011Q3

REPORT INFORMATION
  Report Type: 
  Country: None (occurrence: None)
  Receive Date: 20110817
  Receipt Date: 20110809
  Transmission Date: 20111222
  Serious: Yes (Hospitalization)
  Sender: FDA-Public Use
  Company Number: PHHY2011JP71840

PATIENT
  Age: 15 Year
  Sex: Female

DRUGS (2)
  1. LEVODOPA [Concomitant]
     Dosage: UNK UKN, UNK
     Route: 048
  2. COMTAN [Suspect]
     Indication: PARKINSON'S DISEASE
     Dosage: 300 MG, DAILY
     Route: 048

REACTIONS (2)
  - CHROMATURIA [None]
  - YELLOW SKIN [None]
